FAERS Safety Report 21562855 (Version 1)
Quarter: 2022Q4

REPORT INFORMATION
  Report Type: Spontaneous
  Country: JP (occurrence: JP)
  Receive Date: 20221107
  Receipt Date: 20221107
  Transmission Date: 20230113
  Serious: Yes (Death, Other)
  Sender: FDA-Public Use
  Company Number: JP-BRISTOL-MYERS SQUIBB COMPANY-2022-133589

PATIENT
  Age: 79 Year
  Sex: Male
  Weight: 56 kg

DRUGS (12)
  1. VIDAZA [Suspect]
     Active Substance: AZACITIDINE
     Indication: Acute myeloid leukaemia
     Dosage: CYCLE 1
     Route: 058
     Dates: start: 20211020, end: 20211026
  2. VIDAZA [Suspect]
     Active Substance: AZACITIDINE
     Indication: Myelodysplastic syndrome
     Dosage: CYCLE 2
     Route: 058
     Dates: start: 20211130, end: 20211206
  3. VIDAZA [Suspect]
     Active Substance: AZACITIDINE
     Dosage: CYCLE 3
     Route: 058
     Dates: start: 20220117, end: 20220122
  4. VIDAZA [Suspect]
     Active Substance: AZACITIDINE
     Dosage: CYCLE 4
     Route: 041
     Dates: start: 20220319, end: 20220320
  5. VIDAZA [Suspect]
     Active Substance: AZACITIDINE
     Dosage: CYCLE 4
     Route: 041
     Dates: start: 20220401, end: 20220405
  6. VIDAZA [Suspect]
     Active Substance: AZACITIDINE
     Dosage: CYCLE 4
     Route: 041
     Dates: start: 20220510, end: 20220516
  7. VIDAZA [Suspect]
     Active Substance: AZACITIDINE
     Dosage: CYCLE 4
     Route: 041
     Dates: start: 20220621, end: 20220625
  8. VENCLEXTA [Suspect]
     Active Substance: VENETOCLAX
     Indication: Acute myeloid leukaemia
     Dosage: 100 MG TO 400 MG DAILY
     Route: 048
     Dates: start: 20211020, end: 20211117
  9. VENCLEXTA [Suspect]
     Active Substance: VENETOCLAX
     Dosage: 100 MG TO 400 MG DAILY
     Route: 048
     Dates: start: 20211130, end: 20220206
  10. VENCLEXTA [Suspect]
     Active Substance: VENETOCLAX
     Route: 048
     Dates: start: 20220319, end: 20220320
  11. VENCLEXTA [Suspect]
     Active Substance: VENETOCLAX
     Dosage: 200 MG- 400 MG
     Route: 048
     Dates: start: 20220401, end: 20220418
  12. VENCLEXTA [Suspect]
     Active Substance: VENETOCLAX
     Dosage: 100 MG TO 400 MG DAILY
     Route: 048
     Dates: start: 20220610, end: 20220701

REACTIONS (1)
  - Death [Fatal]

NARRATIVE: CASE EVENT DATE: 20220802
